FAERS Safety Report 7553675-2 (Version None)
Quarter: 2011Q2

REPORT INFORMATION
  Report Type: 
  Country: None (occurrence: None)
  Receive Date: 20110614
  Receipt Date: 20110614
  Transmission Date: 20111010
  Serious: Yes (Other)
  Sender: FDA-Public Use
  Company Number: None

PATIENT
  Age: 28 Year
  Sex: Female
  Weight: 56.6996 kg

DRUGS (1)
  1. WALGREEN'S GENERIC CLARITIN D LORATIDINE 10MG/PSEUDOPHENDINE 240 WALGR [Suspect]
     Indication: MULTIPLE ALLERGIES
     Dosage: LORATADINE10MG/PSEUDOPHEDRINE 1/24HR PO
     Route: 048
     Dates: start: 20110606, end: 20110610

REACTIONS (2)
  - PRODUCT SUBSTITUTION ISSUE [None]
  - DYSPNOEA [None]
